FAERS Safety Report 11958898 (Version 1)
Quarter: 2016Q1

REPORT INFORMATION
  Report Type: Spontaneous
  Country: GB (occurrence: GB)
  Receive Date: 20160126
  Receipt Date: 20160126
  Transmission Date: 20160526
  Serious: Yes (Other)
  Sender: FDA-Public Use
  Company Number: GB-BAUSCH-BL-2016-002056

PATIENT
  Sex: Male

DRUGS (6)
  1. GENTAMICIN. [Suspect]
     Active Substance: GENTAMICIN
     Indication: HIP ARTHROPLASTY
     Route: 065
  2. VANCOMYCIN [Suspect]
     Active Substance: VANCOMYCIN
     Indication: HIP ARTHROPLASTY
     Route: 065
  3. GENTAMICIN. [Suspect]
     Active Substance: GENTAMICIN
     Indication: INFECTION
  4. CALCIUM SULPHATE [Suspect]
     Active Substance: CALCIUM SULFATE
     Indication: HIP ARTHROPLASTY
     Route: 065
  5. VANCOMYCIN [Suspect]
     Active Substance: VANCOMYCIN
     Indication: INFECTION
  6. CALCIUM SULPHATE [Suspect]
     Active Substance: CALCIUM SULFATE
     Indication: INFECTION

REACTIONS (3)
  - Confusional state [None]
  - Hypercalcaemia [Recovered/Resolved]
  - Lethargy [None]
